FAERS Safety Report 6044448-0 (Version None)
Quarter: 2009Q1

REPORT INFORMATION
  Report Type: 
  Country: None (occurrence: None)
  Receive Date: 20090120
  Receipt Date: 20081201
  Transmission Date: 20090719
  Serious: Yes (Hospitalization, Other)
  Sender: FDA-Public Use
  Company Number: US-PFIZER INC-2008086558

PATIENT
  Age: 70 Year
  Sex: Male

DRUGS (2)
  1. LIPITOR [Suspect]
  2. LISINOPRIL [Suspect]
     Dates: end: 20081021

REACTIONS (3)
  - BILIARY DYSKINESIA [None]
  - OEDEMA [None]
  - PANCREATITIS [None]
